FAERS Safety Report 24267555 (Version 1)
Quarter: 2024Q3

REPORT INFORMATION
  Report Type: Spontaneous
  Country: US (occurrence: None)
  Receive Date: 20240829
  Receipt Date: 20240829
  Transmission Date: 20241016
  Serious: Yes (Disabling)
  Sender: Public
  Company Number: None

PATIENT
  Age: 33 Year
  Sex: Female
  Weight: 67.5 kg

DRUGS (2)
  1. BUPRENORPHINE AND NALOXONE [Suspect]
     Active Substance: BUPRENORPHINE HYDROCHLORIDE\NALOXONE HYDROCHLORIDE
     Indication: Drug dependence
     Dosage: OTHER QUANTITY : 3 SUBLINGUAL;?FREQUENCY : 3 TIMES A DAY;?
     Route: 060
     Dates: start: 20210821
  2. BUPRENORPHINE AND NALOXONE [Suspect]
     Active Substance: BUPRENORPHINE HYDROCHLORIDE\NALOXONE HYDROCHLORIDE
     Indication: Pain

REACTIONS (1)
  - Periodontal disease [None]

NARRATIVE: CASE EVENT DATE: 20240826
